FAERS Safety Report 12211254 (Version 1)
Quarter: 2016Q1

REPORT INFORMATION
  Report Type: Spontaneous
  Country: US (occurrence: US)
  Receive Date: 20160325
  Receipt Date: 20160325
  Transmission Date: 20160526
  Serious: Yes (Other)
  Sender: FDA-Public Use
  Company Number: US-BAYER-2016-052290

PATIENT
  Age: 30 Year
  Sex: Female

DRUGS (5)
  1. ENOXAPARIN [Interacting]
     Active Substance: ENOXAPARIN
     Indication: PLACENTAL DISORDER
  2. ENOXAPARIN [Interacting]
     Active Substance: ENOXAPARIN
     Indication: THROMBOSIS PROPHYLAXIS
  3. ACETYLSALICYLIC ACID({=100 MG) [Interacting]
     Active Substance: ASPIRIN
     Indication: PLACENTAL DISORDER
     Dosage: 1 DF, QD, FROM 19+5 GA WEEK TO 29+4 WEEKS GA
     Route: 048
  4. ACETYLSALICYLIC ACID({=100 MG) [Suspect]
     Active Substance: ASPIRIN
     Indication: PROPHYLAXIS
     Dosage: 1 DF, QD, FROM 7 GA WEEK TO 14 + 2 WEEKS GA
     Route: 048
  5. BETAMETHASONE. [Concomitant]
     Active Substance: BETAMETHASONE
     Indication: MATERNAL THERAPY TO ENHANCE FOETAL LUNG MATURITY

REACTIONS (7)
  - Premature labour [None]
  - Off label use [None]
  - Subchorionic haemorrhage [None]
  - Maternal exposure during pregnancy [None]
  - Preterm premature rupture of membranes [None]
  - Labelled drug-drug interaction medication error [None]
  - Oligohydramnios [None]
